FAERS Safety Report 23832186 (Version 3)
Quarter: 2025Q2

REPORT INFORMATION
  Report Type: Spontaneous
  Country: US (occurrence: US)
  Receive Date: 20240508
  Receipt Date: 20250403
  Transmission Date: 20250716
  Serious: Yes (Other)
  Sender: AMGEN
  Company Number: US-AMGEN-USASP2024088152

PATIENT

DRUGS (1)
  1. EPOETIN ALFA [Suspect]
     Active Substance: ERYTHROPOIETIN
     Indication: Nephrogenic anaemia
     Route: 065

REACTIONS (44)
  - Adverse event [Unknown]
  - Cardiac arrest [Unknown]
  - Cardiac failure congestive [Unknown]
  - Cardio-respiratory arrest [Unknown]
  - Endocarditis [Unknown]
  - Pulmonary oedema [Unknown]
  - Arrhythmia [Unknown]
  - Colitis ischaemic [Unknown]
  - Gastritis erosive [Unknown]
  - Pancreatitis acute [Unknown]
  - Peritonitis [Unknown]
  - Gangrene [Unknown]
  - Haematoma [Unknown]
  - Hypotension [Unknown]
  - Transient ischaemic attack [Recovered/Resolved]
  - Cellulitis [Unknown]
  - Gastroenteritis clostridial [Unknown]
  - Device related infection [Unknown]
  - Pneumonia [Unknown]
  - Sepsis [Unknown]
  - Subcutaneous abscess [Unknown]
  - Abdominal pain [Unknown]
  - Arterial stenosis [Unknown]
  - Myocardial infarction [Unknown]
  - Hypertension [Unknown]
  - Clostridium difficile infection [Unknown]
  - Diarrhoea [Unknown]
  - Dyspepsia [Unknown]
  - Dyspnoea [Unknown]
  - Chest pain [Unknown]
  - Back pain [Unknown]
  - Hyperhidrosis [Unknown]
  - Hot flush [Unknown]
  - Anaemia [Unknown]
  - Coagulopathy [Unknown]
  - Bronchitis [Unknown]
  - Conjunctivitis [Unknown]
  - Fungal infection [Unknown]
  - Furuncle [Unknown]
  - Nasopharyngitis [Unknown]
  - Urinary tract infection [Unknown]
  - Upper respiratory tract infection [Unknown]
  - Dizziness [Unknown]
  - Skin infection [Unknown]
